FAERS Safety Report 13239136 (Version 1)
Quarter: 2017Q1

REPORT INFORMATION
  Report Type: Spontaneous
  Country: US (occurrence: US)
  Receive Date: 20170216
  Receipt Date: 20170216
  Transmission Date: 20170428
  Serious: Yes (Hospitalization, Other)
  Sender: FDA-Public Use
  Company Number: US-PFIZER INC-2017065025

PATIENT
  Age: 80 Year
  Sex: Female
  Weight: 59 kg

DRUGS (2)
  1. TYLENOL WITH CODEINE [Concomitant]
     Active Substance: ACETAMINOPHEN\CODEINE PHOSPHATE
     Indication: PAIN
     Dosage: 1 DF, AS NEEDED
     Dates: start: 201701
  2. VORICONAZOLE. [Suspect]
     Active Substance: VORICONAZOLE
     Dosage: 200 MG, 2X/DAY EVERY 12 HOURS
     Route: 048
     Dates: start: 201701

REACTIONS (7)
  - Oral candidiasis [Recovering/Resolving]
  - Oesophageal candidiasis [Recovering/Resolving]
  - Eating disorder [Recovering/Resolving]
  - Oral pain [Recovering/Resolving]
  - Bacteraemia [Recovered/Resolved]
  - Pneumonia [Recovering/Resolving]
  - Asthenia [Recovering/Resolving]

NARRATIVE: CASE EVENT DATE: 2017
